FAERS Safety Report 9156279 (Version 2)
Quarter: 2013Q4

REPORT INFORMATION
  Report Type: Spontaneous
  Country: BR (occurrence: BR)
  Receive Date: 20130311
  Receipt Date: 20131018
  Transmission Date: 20140711
  Serious: Yes (Other)
  Sender: FDA-Public Use
  Company Number: BR-BRISTOL-MYERS SQUIBB COMPANY-17457201

PATIENT
  Age: 56 Year
  Sex: Female

DRUGS (12)
  1. GLIFAGE XR [Suspect]
     Indication: DIABETES MELLITUS
     Dosage: GLIFAGE XR 500 MGTABS?2 DOSAGE FORMS 2 TIMES A DAY (2 TABLETS IN MORNING AND 2 TABLETS AT NIGHT)
     Dates: start: 201301
  2. SERTRALINE [Concomitant]
     Dosage: 1 DF=5 NO UNITS
  3. ENALAPRIL [Concomitant]
  4. AMLODIPINE [Concomitant]
  5. INSULIN [Concomitant]
     Indication: DIABETES MELLITUS
     Dosage: AT NIGHT
  6. HYDROCHLOROTHIAZIDE [Concomitant]
  7. ACETYLSALICYLIC ACID [Concomitant]
     Dosage: AT 2 PM
  8. GLIMEPIRIDE [Concomitant]
     Indication: DIABETES MELLITUS
     Dosage: 2 DF (1 DF,L CAB ON MORNING AND 1 TAB AT NIGHT)? 4 MG 1 ,TAB IN MRNG AND 1 TAB IN NIGHT
  9. CLONAZEPAM [Concomitant]
     Dosage: BEFORE SLEEP
  10. HYDROXYCHLOROQUINE [Concomitant]
     Indication: SYSTEMIC LUPUS ERYTHEMATOSUS
  11. HYDROXYCHLOROQUINE [Concomitant]
     Indication: ARTHRITIS
  12. DORFLEX [Concomitant]
     Indication: PAIN

REACTIONS (7)
  - Diabetes mellitus [Not Recovered/Not Resolved]
  - Hypertension [Unknown]
  - Hypothyroidism [Unknown]
  - Pollakiuria [Recovering/Resolving]
  - Visual impairment [Not Recovered/Not Resolved]
  - Blood thyroid stimulating hormone increased [Unknown]
  - Lactose intolerance [Unknown]
